FAERS Safety Report 24163962 (Version 1)
Quarter: 2024Q3

REPORT INFORMATION
  Report Type: Spontaneous
  Country: US (occurrence: US)
  Receive Date: 20240801
  Receipt Date: 20240801
  Transmission Date: 20241017
  Serious: No
  Sender: UPSHER-SMITH
  Company Number: US-UPSHER-SMITH LABORATORIES, LLC-2024USL00309

PATIENT
  Age: 0 Year
  Sex: Male

DRUGS (1)
  1. VIGADRONE [Suspect]
     Active Substance: VIGABATRIN
     Indication: Infantile spasms
     Dosage: 2.5 ML BY MOUTH TWICE DAILY
     Route: 048
     Dates: start: 20240327

REACTIONS (5)
  - Pulmonary congestion [Not Recovered/Not Resolved]
  - Breath sounds abnormal [Not Recovered/Not Resolved]
  - Productive cough [Not Recovered/Not Resolved]
  - Irritability [Not Recovered/Not Resolved]
  - Somnolence [Not Recovered/Not Resolved]

NARRATIVE: CASE EVENT DATE: 20240301
